FAERS Safety Report 23964261 (Version 2)
Quarter: 2025Q1

REPORT INFORMATION
  Report Type: Spontaneous
  Country: JP (occurrence: JP)
  Receive Date: 20240611
  Receipt Date: 20250318
  Transmission Date: 20250408
  Serious: Yes (Other)
  Sender: BRISTOL-MYERS SQUIBB COMPANY
  Company Number: JP-BRISTOL-MYERS SQUIBB COMPANY-2024-093771

PATIENT
  Age: 69 Year
  Sex: Male
  Weight: 53 kg

DRUGS (7)
  1. VIDAZA [Suspect]
     Active Substance: AZACITIDINE
     Indication: Acute myeloid leukaemia
     Route: 042
     Dates: start: 2022, end: 202205
  2. VIDAZA [Suspect]
     Active Substance: AZACITIDINE
     Dosage: 2ND TO 7TH CYCLE OF VIDAZA AT 37.5 MG/M^2 DAILY UNTIL 2023
     Route: 042
     Dates: start: 202302
  3. VIDAZA [Suspect]
     Active Substance: AZACITIDINE
     Dosage: STARTED TO RECEIVE FROM THE 8TH CYCLE OF VIDAZA AT 56.25 MG/M^2 DAILY, ONGOING
     Route: 042
  4. VENCLEXTA [Concomitant]
     Active Substance: VENETOCLAX
     Indication: Acute myeloid leukaemia
     Dates: start: 2022, end: 2022
  5. VENCLEXTA [Concomitant]
     Active Substance: VENETOCLAX
     Dates: start: 2022, end: 202205
  6. VENCLEXTA [Concomitant]
     Active Substance: VENETOCLAX
     Dates: start: 202302, end: 202307
  7. VENCLEXTA [Concomitant]
     Active Substance: VENETOCLAX
     Dates: start: 202307

REACTIONS (4)
  - Cardiac failure acute [Unknown]
  - Acute kidney injury [Unknown]
  - Nephrotic syndrome [Unknown]
  - Acute myeloid leukaemia [Unknown]

NARRATIVE: CASE EVENT DATE: 20220101
